FAERS Safety Report 22230739 (Version 3)
Quarter: 2023Q2

REPORT INFORMATION
  Report Type: Report from Study
  Country: CH (occurrence: CH)
  Receive Date: 20230420
  Receipt Date: 20230612
  Transmission Date: 20230722
  Serious: Yes (Hospitalization, Other)
  Sender: FDA-Public Use
  Company Number: CH-JNJFOC-20230431883

PATIENT
  Age: 79 Year
  Sex: Male
  Weight: 72 kg

DRUGS (2)
  1. TECVAYLI [Suspect]
     Active Substance: TECLISTAMAB-CQYV
     Indication: Plasma cell myeloma refractory
     Route: 058
     Dates: start: 20230222
  2. TECVAYLI [Suspect]
     Active Substance: TECLISTAMAB-CQYV
     Dosage: DURING THE STEP-UP?2ND INJECTION
     Route: 058

REACTIONS (2)
  - Cytokine release syndrome [Recovered/Resolved]
  - Nephropathy [Recovered/Resolved]

NARRATIVE: CASE EVENT DATE: 20230228
